FAERS Safety Report 17186802 (Version 2)
Quarter: 2020Q1

REPORT INFORMATION
  Report Type: Spontaneous
  Country: US (occurrence: US)
  Receive Date: 20191220
  Receipt Date: 20200120
  Transmission Date: 20200409
  Serious: No
  Sender: FDA-Public Use
  Company Number: US-ASTRAZENECA-2019SF79235

PATIENT
  Sex: Female

DRUGS (3)
  1. HUMIRA [Suspect]
     Active Substance: ADALIMUMAB
     Indication: ANKYLOSING SPONDYLITIS
     Dosage: CITRATE FREE
     Route: 058
  2. METOPROLOL. [Suspect]
     Active Substance: METOPROLOL
     Route: 065
  3. FARXIGA [Suspect]
     Active Substance: DAPAGLIFLOZIN PROPANEDIOL
     Route: 048

REACTIONS (11)
  - Hypotension [Unknown]
  - Hypertension [Unknown]
  - Ventricular extrasystoles [Unknown]
  - Arthralgia [Unknown]
  - Stress [Unknown]
  - Headache [Unknown]
  - Presyncope [Unknown]
  - Depression [Unknown]
  - Dizziness [Unknown]
  - Diabetes mellitus [Unknown]
  - Nodule [Unknown]
